FAERS Safety Report 9063239 (Version 1)
Quarter: 2013Q1

REPORT INFORMATION
  Report Type: Report from Study
  Country: US (occurrence: US)
  Receive Date: 20130131
  Receipt Date: 20130131
  Transmission Date: 20140127
  Serious: No
  Sender: FDA-Public Use
  Company Number: US-ABBOTT-12P-163-0986906-00

PATIENT
  Age: 11 Year
  Sex: Female

DRUGS (2)
  1. HUMIRA [Suspect]
     Indication: UVEITIS
     Dosage: INITIAL DOSE
     Dates: start: 20120921
  2. HUMIRA [Suspect]
     Dosage: INITIAL DOSE

REACTIONS (3)
  - Drug administered at inappropriate site [Unknown]
  - Injection site pain [Recovered/Resolved]
  - Fear of injection [Unknown]
